FAERS Safety Report 12190548 (Version 1)
Quarter: 2016Q1

REPORT INFORMATION
  Report Type: Spontaneous
  Country: US (occurrence: None)
  Receive Date: 20160317
  Receipt Date: 20160317
  Transmission Date: 20160526
  Serious: Yes (Hospitalization)
  Sender: FDA-Public Use
  Company Number: None

PATIENT
  Age: 62 Year
  Sex: Male
  Weight: 95.9 kg

DRUGS (2)
  1. HALOPERIDOL. [Suspect]
     Active Substance: HALOPERIDOL
     Indication: SCHIZOAFFECTIVE DISORDER
     Route: 030
     Dates: start: 20150710, end: 20150716
  2. HALOPERIDOL. [Suspect]
     Active Substance: HALOPERIDOL
     Indication: SCHIZOAFFECTIVE DISORDER
     Route: 048
     Dates: start: 20150701, end: 20150714

REACTIONS (5)
  - Parkinsonism [None]
  - Extrapyramidal disorder [None]
  - Speech disorder [None]
  - Muscle rigidity [None]
  - Drooling [None]

NARRATIVE: CASE EVENT DATE: 20150723
